FAERS Safety Report 21448588 (Version 2)
Quarter: 2022Q4

REPORT INFORMATION
  Report Type: Spontaneous
  Country: CL (occurrence: CL)
  Receive Date: 20221013
  Receipt Date: 20221117
  Transmission Date: 20230113
  Serious: Yes (Death, Hospitalization, Other)
  Sender: FDA-Public Use
  Company Number: CL-BRISTOL-MYERS SQUIBB COMPANY-2022-095758

PATIENT
  Age: 78 Year
  Sex: Female

DRUGS (1)
  1. ORENCIA [Suspect]
     Active Substance: ABATACEPT
     Indication: Rheumatoid arthritis
     Dosage: UNITS: 4; FREQUENCY: 7 UNITS NOS
     Route: 058
     Dates: start: 20190205, end: 20220301

REACTIONS (5)
  - Sepsis [Fatal]
  - Arthropathy [Unknown]
  - Bedridden [Unknown]
  - Post procedural complication [Unknown]
  - Joint injury [Unknown]

NARRATIVE: CASE EVENT DATE: 20220228
